FAERS Safety Report 22307930 (Version 1)
Quarter: 2023Q2

REPORT INFORMATION
  Report Type: Spontaneous
  Country: US (occurrence: US)
  Receive Date: 20230511
  Receipt Date: 20230511
  Transmission Date: 20230722
  Serious: No
  Sender: FDA-Public Use
  Company Number: US-Amarin Pharma  Inc.-2023AMR000069

PATIENT
  Age: 73 Year
  Sex: Female
  Weight: 134 kg

DRUGS (1)
  1. VASCEPA [Suspect]
     Active Substance: ICOSAPENT ETHYL
     Indication: Blood triglycerides increased
     Dosage: 2 CAPSULES IN AM/2CAPSULES IN PM
     Route: 048

REACTIONS (5)
  - Poor quality product administered [Unknown]
  - Product odour abnormal [Unknown]
  - Product leakage [Unknown]
  - Product physical issue [Unknown]
  - Product colour issue [Unknown]
